FAERS Safety Report 25354377 (Version 1)
Quarter: 2025Q2

REPORT INFORMATION
  Report Type: Spontaneous
  Country: CN (occurrence: CN)
  Receive Date: 20250523
  Receipt Date: 20250523
  Transmission Date: 20250717
  Serious: Yes (Life-Threatening)
  Sender: PURDUE
  Company Number: CN-NAPPMUNDI-GBR-2025-0125840

PATIENT
  Age: 74 Year
  Sex: Female
  Weight: 55 kg

DRUGS (2)
  1. MORPHINE SULFATE [Interacting]
     Active Substance: MORPHINE SULFATE
     Indication: Cancer pain
     Dosage: 40 MILLIGRAM, BID
     Route: 048
     Dates: start: 20250514, end: 20250519
  2. PREGABALIN [Interacting]
     Active Substance: PREGABALIN
     Indication: Cancer pain
     Dosage: 75 MILLIGRAM, DAILY
     Route: 048
     Dates: start: 20250515, end: 202505

REACTIONS (3)
  - Respiratory depression [Recovering/Resolving]
  - Somnolence [Recovering/Resolving]
  - Labelled drug-drug interaction issue [Unknown]

NARRATIVE: CASE EVENT DATE: 20250515
